FAERS Safety Report 9800455 (Version 1)
Quarter: 2014Q1

REPORT INFORMATION
  Report Type: Report from Study
  Country: US (occurrence: US)
  Receive Date: 20140107
  Receipt Date: 20140107
  Transmission Date: 20141002
  Serious: Yes (Hospitalization)
  Sender: FDA-Public Use
  Company Number: US-ROCHE-1329375

PATIENT
  Age: 53 Year
  Sex: Female

DRUGS (12)
  1. XOLAIR [Suspect]
     Indication: PRODUCT USED FOR UNKNOWN INDICATION
     Route: 065
  2. LEVOTHYROXINE SODIUM [Concomitant]
     Dosage: 1 TABLET ON AN EMPTY SOTMACH IN THE AM ONCE A DAY
     Route: 065
  3. NEXIUM [Concomitant]
     Dosage: ONE CAPSULE ONCE A DAY
     Route: 065
  4. VICODIN [Concomitant]
     Dosage: 1 TABLET AS NEEDED EVERY 6H
     Route: 065
     Dates: end: 20131116
  5. VENTOLIN HFA [Concomitant]
     Dosage: 2 PUFFS AS NEEDED 4 TIMES A DAY?108 MCG/ACT AEROSOL SOLUTION
     Route: 065
  6. ADVAIR DISKUS [Concomitant]
     Dosage: 1 PUFF TWICE A DAY?500-50MCG/DOSE AEROSOL POWDER BREATH ACTIVATED
     Route: 065
  7. TUDORZA [Concomitant]
     Dosage: 1 PUFF TWICE DAILY?400MCG/ACT INHALER
     Route: 065
  8. ALBUTEROL SULFATE [Concomitant]
     Dosage: AS NEEDED 3X A DAY?2.5MG/3ML 0.083% NEBULIZATION SOLUTION
     Route: 065
  9. SINGULAIR [Concomitant]
     Dosage: 1 TABLET IN THE EVENING ONCE A DAY
     Route: 065
  10. PATANASE [Concomitant]
     Dosage: 2 SPRAYS TWICE A DAY
     Route: 065
  11. XYZAL [Concomitant]
     Dosage: ONE TABLET IN THE EVENING ONCE A DAY
     Route: 065
  12. PREDNISONE [Concomitant]
     Dosage: 1 TABLET WITH FOOD OR MILK ONCE A DAY FOR 30 DAYS
     Route: 065

REACTIONS (12)
  - Asthma [Unknown]
  - Chronic sinusitis [Unknown]
  - Upper respiratory tract infection [Unknown]
  - Night sweats [Unknown]
  - Oropharyngeal pain [Unknown]
  - Dyspnoea exertional [Unknown]
  - Wheezing [Unknown]
  - Pain [Unknown]
  - Asthenia [Unknown]
  - Headache [Unknown]
  - Rhinitis [Unknown]
  - Dyspnoea [Unknown]
